FAERS Safety Report 4724536-9 (Version None)
Quarter: 2005Q3

REPORT INFORMATION
  Report Type: 
  Country: None (occurrence: None)
  Receive Date: 20050721
  Receipt Date: 20050713
  Transmission Date: 20060218
  Serious: No
  Sender: FDA-Public Use
  Company Number: 21-027-05-00008

PATIENT
  Sex: Male
  Weight: 81 kg

DRUGS (8)
  1. HECTOROL [Suspect]
     Indication: HYPERPARATHYROIDISM SECONDARY
     Dosage: 3 MCG 3 X/WEEK IV/MANY DOSES
     Route: 042
  2. COUMADIN [Concomitant]
  3. PLAVIX [Concomitant]
  4. RENAGEL TABLETS [Concomitant]
  5. ALTACE [Concomitant]
  6. DIGOXIN [Concomitant]
  7. RENAVITE [Concomitant]
  8. LASIX [Concomitant]

REACTIONS (5)
  - BLOOD PRESSURE DECREASED [None]
  - DEPRESSED LEVEL OF CONSCIOUSNESS [None]
  - HAEMODIALYSIS [None]
  - INFUSION RELATED REACTION [None]
  - THROAT TIGHTNESS [None]
